FAERS Safety Report 25388412 (Version 6)
Quarter: 2025Q3

REPORT INFORMATION
  Report Type: Spontaneous
  Country: US (occurrence: US)
  Receive Date: 20250603
  Receipt Date: 20250904
  Transmission Date: 20251020
  Serious: Yes (Hospitalization, Other)
  Sender: UNITED THERAPEUTICS
  Company Number: US-UNITED THERAPEUTICS-UNT-2025-016501

PATIENT
  Age: 65 Year
  Sex: Female
  Weight: 83.01 kg

DRUGS (7)
  1. REMODULIN [Suspect]
     Active Substance: TREPROSTINIL
     Indication: Pulmonary arterial hypertension
  2. REMODULIN [Suspect]
     Active Substance: TREPROSTINIL
     Indication: Sarcoidosis
  3. REMODULIN [Suspect]
     Active Substance: TREPROSTINIL
  4. REMODULIN [Suspect]
     Active Substance: TREPROSTINIL
     Indication: Pulmonary arterial hypertension
  5. REMODULIN [Suspect]
     Active Substance: TREPROSTINIL
     Indication: Sarcoidosis
  6. AMBRISENTAN [Concomitant]
     Active Substance: AMBRISENTAN
     Indication: Product used for unknown indication
  7. SILDENAFIL CITRATE [Concomitant]
     Active Substance: SILDENAFIL CITRATE
     Indication: Product used for unknown indication

REACTIONS (21)
  - Device issue [Recovered/Resolved]
  - Device failure [Recovered/Resolved]
  - Cardiac failure [Recovering/Resolving]
  - Device leakage [Recovered/Resolved]
  - Device physical property issue [Unknown]
  - Device wireless communication issue [Unknown]
  - Device power source issue [Unknown]
  - Device malfunction [Recovered/Resolved]
  - Device electrical finding [Recovered/Resolved]
  - Infusion site pain [Unknown]
  - Sarcoidosis [Unknown]
  - Off label use [Recovered/Resolved]
  - Blood creatine increased [Unknown]
  - Glomerular filtration rate decreased [Unknown]
  - Headache [Unknown]
  - Vomiting [Unknown]
  - Device use error [Unknown]
  - Device malfunction [Recovered/Resolved]
  - Device malfunction [Recovered/Resolved]
  - Device wireless communication issue [Recovered/Resolved]
  - Device electrical finding [Recovered/Resolved]

NARRATIVE: CASE EVENT DATE: 20230401
